FAERS Safety Report 7130213-X (Version None)
Quarter: 2010Q4

REPORT INFORMATION
  Report Type: 
  Country: None (occurrence: None)
  Receive Date: 20101201
  Receipt Date: 20101118
  Transmission Date: 20110411
  Serious: Yes (Other)
  Sender: FDA-Public Use
  Company Number: GB-SOLVAY-00210007004

PATIENT
  Age: 44 Year
  Sex: Female

DRUGS (8)
  1. VICTOZA [Suspect]
     Indication: DIABETES MELLITUS
     Dosage: DAILY DOSE: 1.2 MILLIGRAM(S)
     Route: 058
     Dates: start: 20100319
  2. VICTOZA [Suspect]
     Dosage: DAILY DOSE: 1.2 MILLIGRAM(S)
     Route: 058
     Dates: start: 20100804
  3. NOVORAPID [Suspect]
     Indication: DIABETES MELLITUS
     Dosage: DAILY DOSE: 6 INTERNATIONAL UNIT(S)
     Route: 058
     Dates: start: 20100804
  4. LEVEMIR [Suspect]
     Indication: DIABETES MELLITUS
     Dosage: DAILY DOSE: 6 DOSAGE FORM
     Route: 058
     Dates: start: 20100804
  5. GLUCOPHAGE [Suspect]
     Indication: DIABETES MELLITUS
     Dosage: DAILY DOSE: 2 GRAM(S)
     Route: 048
     Dates: end: 20100804
  6. DIAMICRON NOS [Suspect]
     Indication: DIABETES MELLITUS
     Dosage: DAILY DOSE:  UNKNOWN
     Route: 065
  7. PERINDOPRIL [Suspect]
     Indication: PRODUCT USED FOR UNKNOWN INDICATION
     Dosage: DAILY DOSE: 8 MILLIGRAM(S)
     Route: 048
     Dates: start: 20090316, end: 20100804
  8. ROSUVASTATIN [Concomitant]
     Indication: PRODUCT USED FOR UNKNOWN INDICATION
     Dosage: DAILY DOSE:  UNKNOWN
     Route: 065
     Dates: end: 20100804

REACTIONS (2)
  - ABORTION SPONTANEOUS [None]
  - DRUG EXPOSURE DURING PREGNANCY [None]
